FAERS Safety Report 15635288 (Version 2)
Quarter: 2018Q4

REPORT INFORMATION
  Report Type: Spontaneous
  Country: CA (occurrence: CA)
  Receive Date: 20181120
  Receipt Date: 20181129
  Transmission Date: 20190205
  Serious: Yes (Other)
  Sender: FDA-Public Use
  Company Number: CA-ACCORD-092715

PATIENT
  Age: 22 Year
  Sex: Female

DRUGS (3)
  1. ETOPOSIDE. [Suspect]
     Active Substance: ETOPOSIDE
     Indication: OVARIAN GERM CELL ENDODERMAL SINUS TUMOUR STAGE III
     Dosage: NEOADJUVANT CHEMOTHERAPY
  2. CISPLATIN. [Suspect]
     Active Substance: CISPLATIN
     Indication: OVARIAN GERM CELL ENDODERMAL SINUS TUMOUR STAGE III
     Dosage: NEOADJUVANT CHEMOTHERAPY
  3. BLEOMYCIN [Suspect]
     Active Substance: BLEOMYCIN SULFATE
     Indication: OVARIAN GERM CELL ENDODERMAL SINUS TUMOUR STAGE III
     Dosage: NEOADJUVANT CHEMOTHERAPY

REACTIONS (7)
  - Ovarian atrophy [Unknown]
  - Febrile neutropenia [Unknown]
  - Depression [Unknown]
  - Dyspnoea [Recovered/Resolved]
  - Fatigue [Unknown]
  - Pleural effusion [Unknown]
  - Insomnia [Unknown]
